FAERS Safety Report 3821921 (Version 2)
Quarter: 2020Q3

REPORT INFORMATION
  Report Type: Report from Study
  Country: BE (occurrence: BE)
  Receive Date: 20020722
  Receipt Date: 20040910
  Transmission Date: 20201104
  Serious: Yes (Hospitalization)
  Sender: FDA-Public Use
  Company Number: EMADSS2002003276

PATIENT
  Age: 89 Year
  Sex: Female

DRUGS (3)
  1. GALANTAMINE HYDROBROMIDE. [Suspect]
     Active Substance: GALANTAMINE HYDROBROMIDE
     Route: 049
  2. PLACEBO [Suspect]
     Active Substance: UNSPECIFIED INGREDIENT
     Route: 049
     Dates: start: 20011120, end: 20020522
  3. GALANTAMINE HYDROBROMIDE. [Suspect]
     Active Substance: GALANTAMINE HYDROBROMIDE
     Route: 049

REACTIONS (8)
  - Depression [Recovered/Resolved]
  - Decreased appetite [Recovered/Resolved]
  - Ventricular tachycardia [None]
  - Pneumonia [None]
  - Atrial fibrillation [Recovered/Resolved]
  - Hepatitis toxic [Recovered/Resolved]
  - Vitamin B6 deficiency [Recovered/Resolved]
  - Psychotic disorder [None]

NARRATIVE: CASE EVENT DATE: 20020522
